FAERS Safety Report 18017686 (Version 5)
Quarter: 2022Q1

REPORT INFORMATION
  Report Type: Report from Study
  Country: US (occurrence: US)
  Receive Date: 20200713
  Receipt Date: 20220228
  Transmission Date: 20220423
  Serious: Yes (Hospitalization, Other)
  Sender: FDA-Public Use
  Company Number: US-TAKEDA-2020TUS030128

PATIENT
  Sex: Male
  Weight: 74.376 kg

DRUGS (1)
  1. BRIGATINIB [Suspect]
     Active Substance: BRIGATINIB
     Indication: Lung neoplasm malignant
     Dosage: 180 MILLIGRAM, QD
     Route: 048
     Dates: start: 20180103

REACTIONS (5)
  - COVID-19 [Unknown]
  - Lung neoplasm malignant [Unknown]
  - Pain [Unknown]
  - Adverse drug reaction [Unknown]
  - Product dose omission issue [Unknown]
